FAERS Safety Report 11121490 (Version 1)
Quarter: 2015Q2

REPORT INFORMATION
  Report Type: Spontaneous
  Country: FR (occurrence: None)
  Receive Date: 20150515
  Receipt Date: 20150515
  Transmission Date: 20150821
  Serious: Yes (Life-Threatening)
  Sender: FDA-Public Use
  Company Number: FK201502207

PATIENT
  Age: 15 Year

DRUGS (6)
  1. METHYLPREDNISOLONE (MANUFACTURER UNKNOWN) (METHYLPREDNISOLONE SODIUM SUCCINATE) (METHYLPREDNISOLONE SODIUM SUCCINATE) [Suspect]
     Active Substance: METHYLPREDNISOLONE
     Indication: GENERAL ANAESTHESIA
     Dosage: INTRAVENOUS (NOT OTHERWISE SPECIFIED)
     Route: 042
  2. PROPOFOL. [Concomitant]
     Active Substance: PROPOFOL
  3. LIDOCAINE GEL [Concomitant]
  4. REMIFENTANYL [Concomitant]
     Active Substance: REMIFENTANIL
  5. SUFENTANYL [Concomitant]
     Active Substance: SUFENTANIL
  6. TRAMADOL [Concomitant]
     Active Substance: TRAMADOL

REACTIONS (1)
  - Anaphylactic shock [None]
